FAERS Safety Report 8203965-5 (Version None)
Quarter: 2012Q1

REPORT INFORMATION
  Report Type: 
  Country: None (occurrence: None)
  Receive Date: 20120227
  Receipt Date: 20111205
  Transmission Date: 20120608
  Serious: No
  Sender: FDA-Public Use
  Company Number: 340822

PATIENT
  Age: 70 Year
  Sex: Male

DRUGS (2)
  1. VICTOZA [Suspect]
     Indication: TYPE 2 DIABETES MELLITUS
     Dosage: 0.6 MG, QD, SUBCUTANEOUS
     Route: 058
     Dates: start: 20111129
  2. CIPRODEX /00697202/ (CIPROFLOXACIN HYDROCHLORIDE) [Concomitant]

REACTIONS (3)
  - DYSPNOEA [None]
  - DIZZINESS [None]
  - ANGINA PECTORIS [None]
